FAERS Safety Report 6643199-9 (Version None)
Quarter: 2010Q1

REPORT INFORMATION
  Report Type: 
  Country: None (occurrence: None)
  Receive Date: 20100319
  Receipt Date: 20100315
  Transmission Date: 20100710
  Serious: Yes (Life-Threatening, Hospitalization)
  Sender: FDA-Public Use
  Company Number: PHHY2010NL15542

PATIENT
  Sex: Female
  Weight: 45 kg

DRUGS (3)
  1. RITALIN [Suspect]
     Dosage: 80 MG, DAILY
     Dates: start: 19950101
  2. ABILIFY [Suspect]
     Dosage: 30 MG, PER TIME
     Dates: start: 20000101
  3. MIRTAZAPINE [Suspect]
     Dosage: 30 MG, DAILY
     Dates: start: 20090901

REACTIONS (7)
  - ANXIETY [None]
  - DECREASED APPETITE [None]
  - DEPRESSION [None]
  - DISTURBANCE IN ATTENTION [None]
  - EATING DISORDER [None]
  - LEARNING DISORDER [None]
  - SUICIDAL IDEATION [None]
